FAERS Safety Report 14036426 (Version 1)
Quarter: 2017Q4

REPORT INFORMATION
  Report Type: Spontaneous
  Country: US (occurrence: US)
  Receive Date: 20171003
  Receipt Date: 20171003
  Transmission Date: 20180321
  Serious: No
  Sender: FDA-Public Use
  Company Number: US-ROCHE-1918705

PATIENT
  Sex: Male

DRUGS (1)
  1. CATHFLO ACTIVASE [Suspect]
     Active Substance: ALTEPLASE
     Indication: THROMBOLYSIS
     Dosage: USED TWICE IN 36 HOURS; ONGOING: NO
     Route: 065
     Dates: start: 20170405

REACTIONS (2)
  - Device occlusion [Unknown]
  - Medical device site haemorrhage [Unknown]

NARRATIVE: CASE EVENT DATE: 20170405
